FAERS Safety Report 7332038-9 (Version None)
Quarter: 2011Q1

REPORT INFORMATION
  Report Type: 
  Country: None (occurrence: None)
  Receive Date: 20110304
  Receipt Date: 20110225
  Transmission Date: 20110831
  Serious: Yes (Hospitalization)
  Sender: FDA-Public Use
  Company Number: FR-PFIZER INC-2010028384

PATIENT
  Age: 35 Year
  Sex: Female

DRUGS (4)
  1. ZOLPIDEM [Suspect]
     Dosage: UNK
     Route: 048
     Dates: start: 20100101, end: 20100101
  2. XANAX [Suspect]
     Dosage: UNK
     Route: 048
     Dates: start: 20100101, end: 20100101
  3. EFFEXOR [Suspect]
     Dosage: UNK
     Dates: start: 20100101, end: 20100101
  4. LEXOMIL [Suspect]
     Dosage: UNK
     Route: 048
     Dates: start: 20100101, end: 20100101

REACTIONS (2)
  - SOMNOLENCE [None]
  - ELECTROCARDIOGRAM QT PROLONGED [None]
